FAERS Safety Report 8275307-0 (Version None)
Quarter: 2012Q2

REPORT INFORMATION
  Report Type: 
  Country: None (occurrence: None)
  Receive Date: 20120411
  Receipt Date: 20120406
  Transmission Date: 20120825
  Serious: Yes (Other)
  Sender: FDA-Public Use
  Company Number: US-PFIZER INC-2010026146

PATIENT
  Sex: Male

DRUGS (1)
  1. CADUET [Suspect]
     Dosage: 5/40, ONE, DAILY

REACTIONS (4)
  - FALL [None]
  - LUNG NEOPLASM MALIGNANT [None]
  - JOINT INJURY [None]
  - BACK INJURY [None]
